FAERS Safety Report 23702438 (Version 2)
Quarter: 2024Q2

REPORT INFORMATION
  Report Type: Report from Study
  Country: JP (occurrence: JP)
  Receive Date: 20240403
  Receipt Date: 20240506
  Transmission Date: 20240715
  Serious: Yes (Hospitalization, Other)
  Sender: FDA-Public Use
  Company Number: JP-ALNYLAM PHARMACEUTICALS, INC.-ALN-2023-003256

PATIENT

DRUGS (6)
  1. AMVUTTRA [Suspect]
     Active Substance: VUTRISIRAN
     Indication: Hereditary neuropathic amyloidosis
     Dosage: 25 MILLIGRAM, Q3M
     Route: 058
     Dates: start: 20230406, end: 20230406
  2. VITAMINS [Concomitant]
     Active Substance: VITAMINS
     Indication: Vitamin supplementation
     Dosage: 1 GRAM
     Route: 048
     Dates: start: 20230406, end: 20230629
  3. METHYLCOBALAMIN [Concomitant]
     Active Substance: METHYLCOBALAMIN
     Indication: Hereditary neuropathic amyloidosis
     Dosage: 1.5 MILLIGRAM
     Route: 048
     Dates: end: 20230629
  4. NEUROTROPIN [Concomitant]
     Active Substance: NEUROTROPIN
     Indication: Hereditary neuropathic amyloidosis
     Dosage: 4 UNIT
     Route: 048
     Dates: end: 20230629
  5. CYMBALTA [Concomitant]
     Active Substance: DULOXETINE HYDROCHLORIDE
     Indication: Hereditary neuropathic amyloidosis
     Dosage: 40 MILLIGRAM
     Route: 048
     Dates: end: 20230629
  6. DROXIDOPA [Concomitant]
     Active Substance: DROXIDOPA
     Indication: Hereditary neuropathic amyloidosis
     Dosage: 300 MILLIGRAM
     Route: 048
     Dates: end: 20230629

REACTIONS (1)
  - Cholecystitis [Recovering/Resolving]

NARRATIVE: CASE EVENT DATE: 20230624
